FAERS Safety Report 12528887 (Version 3)
Quarter: 2016Q3

REPORT INFORMATION
  Report Type: Report from Study
  Country: US (occurrence: US)
  Receive Date: 20160705
  Receipt Date: 20160725
  Transmission Date: 20161109
  Serious: Yes (Hospitalization)
  Sender: FDA-Public Use
  Company Number: US-JNJFOC-20160700162

PATIENT
  Age: 19 Year
  Sex: Male
  Weight: 71.7 kg

DRUGS (1)
  1. REMICADE [Suspect]
     Active Substance: INFLIXIMAB
     Indication: CROHN^S DISEASE
     Route: 042
     Dates: start: 20110330

REACTIONS (1)
  - Drug dependence [Recovered/Resolved with Sequelae]

NARRATIVE: CASE EVENT DATE: 20160121
